FAERS Safety Report 4309880-1 (Version None)
Quarter: 2004Q1

REPORT INFORMATION
  Report Type: 
  Country: None (occurrence: None)
  Receive Date: 20040303
  Receipt Date: 20040113
  Transmission Date: 20041129
  Serious: No
  Sender: FDA-Public Use
  Company Number: US-BRISTOL-MYERS SQUIBB COMPANY-12478194

PATIENT
  Age: 46 Year
  Sex: Female

DRUGS (2)
  1. ABILIFY [Suspect]
     Indication: SCHIZOPHRENIA, PARANOID TYPE
     Route: 048
     Dates: start: 20030717, end: 20030915
  2. AVONEX [Concomitant]

REACTIONS (5)
  - ARTHRALGIA [None]
  - DROOLING [None]
  - INTENTIONAL SELF-INJURY [None]
  - TREMOR [None]
  - WEIGHT INCREASED [None]
